FAERS Safety Report 5126810-3 (Version None)
Quarter: 2006Q4

REPORT INFORMATION
  Report Type: 
  Country: None (occurrence: None)
  Receive Date: 20061013
  Receipt Date: 20061003
  Transmission Date: 20070319
  Serious: Yes (Hospitalization)
  Sender: FDA-Public Use
  Company Number: JP-JNJFOC-20060704474

PATIENT
  Sex: Male
  Weight: 63.6 kg

DRUGS (27)
  1. INFLIXIMAB, RECOMBINANT [Suspect]
     Dosage: BLINDED DOSE OF 3, 6, OR 10 MG/KG
     Route: 042
  2. INFLIXIMAB, RECOMBINANT [Suspect]
     Dosage: BLINDED DOSE OF 3, 6, OR 10 MG/KG
     Route: 042
  3. INFLIXIMAB, RECOMBINANT [Suspect]
     Route: 042
  4. INFLIXIMAB, RECOMBINANT [Suspect]
     Route: 042
  5. INFLIXIMAB, RECOMBINANT [Suspect]
     Indication: RHEUMATOID ARTHRITIS
     Route: 042
  6. PREDONINE [Concomitant]
     Route: 048
  7. PREDONINE [Concomitant]
     Indication: RHEUMATOID ARTHRITIS
     Route: 048
  8. RHEUMATREX [Concomitant]
     Indication: RHEUMATOID ARTHRITIS
     Route: 048
  9. RIMATIL [Concomitant]
     Indication: RHEUMATOID ARTHRITIS
     Route: 048
  10. NABOAL SR [Concomitant]
     Indication: RHEUMATOID ARTHRITIS
     Dosage: START DATE: BEFORE 02-JUL-2005
     Route: 048
  11. ASPIRIN [Concomitant]
     Indication: MYOCARDIAL INFARCTION
     Dosage: START DATE: BEFORE 02-JUL-2005
     Route: 048
  12. LENIMEC [Concomitant]
     Indication: HYPERTENSION
     Dosage: START DATE: BEFORE 02-JUL-2005
     Route: 048
  13. NITOROL A [Concomitant]
     Indication: MYOCARDIAL INFARCTION
     Dosage: START DATE: BEFORE 02-JUL-2005
     Route: 048
  14. ISONIAZID [Concomitant]
     Indication: ANTIBIOTIC PROPHYLAXIS
     Route: 048
  15. MUCOSTA [Concomitant]
     Indication: GASTROINTESTINAL DISORDER THERAPY
     Dosage: START DATE: BEFORE 07-NOV-2005
     Route: 048
  16. VOLTAREN [Concomitant]
     Indication: RHEUMATOID ARTHRITIS
     Dosage: START DATE: BEFORE 07-NOV-2005; DAILY DOSE: ^ADEQUATE DOSE/DAY^
  17. NEOMALLERMIN TR [Concomitant]
     Indication: PREMEDICATION
     Route: 048
  18. POLARAMINE [Concomitant]
     Route: 048
  19. POLARAMINE [Concomitant]
     Route: 048
  20. POLARAMINE [Concomitant]
     Route: 048
  21. POLARAMINE [Concomitant]
     Indication: PREMEDICATION
     Route: 048
  22. CALONAL [Concomitant]
     Route: 048
  23. CALONAL [Concomitant]
     Route: 048
  24. CALONAL [Concomitant]
     Route: 048
  25. CALONAL [Concomitant]
     Route: 048
  26. CALONAL [Concomitant]
     Indication: PREMEDICATION
     Route: 048
  27. FOLIAMIN [Concomitant]
     Indication: PROPHYLAXIS
     Route: 048

REACTIONS (3)
  - PLEURAL EFFUSION [None]
  - PNEUMONIA LEGIONELLA [None]
  - SEPSIS [None]
